FAERS Safety Report 8759306 (Version 1)
Quarter: 2012Q4

REPORT INFORMATION
  Report Type: 
  Country: IT (occurrence: IT)
  Receive Date: 20120829
  Receipt Date: 20120829
  Transmission Date: 20130627
  Serious: Yes (Hospitalization)
  Sender: FDA-Public Use
  Company Number: IT-SANOFI-AVENTIS-2012SA060996

PATIENT
  Age: 60 Year
  Sex: Female

DRUGS (4)
  1. FERLIXIT [Suspect]
     Indication: ANAEMIA
     Dosage: solution for oral and IV administration
     Route: 042
     Dates: start: 20120822, end: 20120822
  2. LEVOPRAID [Suspect]
     Indication: ANTIEMETIC SUPPORTIVE CARE
     Route: 042
     Dates: start: 20120822, end: 20120822
  3. GEMCITABINE [Concomitant]
     Indication: OVARIAN CANCER
     Route: 041
     Dates: start: 20120822, end: 20120822
  4. CARBOPLATIN [Concomitant]
     Indication: OVARIAN CANCER
     Route: 041
     Dates: start: 20120822, end: 20120822

REACTIONS (3)
  - Erythema [Recovering/Resolving]
  - Lip swelling [Recovering/Resolving]
  - Hypotension [Recovering/Resolving]
